FAERS Safety Report 5534793-7 (Version None)
Quarter: 2007Q4

REPORT INFORMATION
  Report Type: 
  Country: None (occurrence: None)
  Receive Date: 20071130
  Receipt Date: 20071122
  Transmission Date: 20080405
  Serious: Yes (Other)
  Sender: FDA-Public Use
  Company Number: 2007SP021618

PATIENT
  Age: 44 Year
  Sex: Male

DRUGS (1)
  1. INTRON A [Suspect]
     Indication: MALIGNANT MELANOMA

REACTIONS (3)
  - DYSPNOEA [None]
  - MELANOMA RECURRENT [None]
  - METASTASES TO CENTRAL NERVOUS SYSTEM [None]
